FAERS Safety Report 21336176 (Version 1)
Quarter: 2022Q3

REPORT INFORMATION
  Report Type: Spontaneous
  Country: US (occurrence: None)
  Receive Date: 20220914
  Receipt Date: 20220914
  Transmission Date: 20221027
  Serious: No
  Sender: FDA-Public Use
  Company Number: None

PATIENT
  Sex: Male
  Weight: 99.79 kg

DRUGS (8)
  1. ERLEADA [Suspect]
     Active Substance: APALUTAMIDE
     Indication: Prostate cancer
     Dosage: FREQUENCY : DAILY;?
     Route: 048
     Dates: start: 20220801
  2. ALLOPURINOL [Concomitant]
     Active Substance: ALLOPURINOL
  3. BICALUTAMIDE [Concomitant]
     Active Substance: BICALUTAMIDE
  4. LISINOPRIL [Concomitant]
     Active Substance: LISINOPRIL
  5. LUPRON [Concomitant]
     Active Substance: LEUPROLIDE ACETATE
  6. PROBIOTICS NOS [Concomitant]
     Active Substance: PROBIOTICS NOS
  7. SIMVASTATIN [Concomitant]
     Active Substance: SIMVASTATIN
  8. VITAMIN B12 [Concomitant]
     Active Substance: CYANOCOBALAMIN

REACTIONS (1)
  - SARS-CoV-2 test positive [None]
